FAERS Safety Report 7952967-2 (Version None)
Quarter: 2011Q4

REPORT INFORMATION
  Report Type: 
  Country: None (occurrence: None)
  Receive Date: 20111201
  Receipt Date: 20111128
  Transmission Date: 20120403
  Serious: Yes (Life-Threatening)
  Sender: FDA-Public Use
  Company Number: PHEH2011US008914

PATIENT
  Sex: Female
  Weight: 157 kg

DRUGS (10)
  1. LASIX [Concomitant]
     Indication: HYPERTENSION
     Dosage: 40 MG, PRN
     Route: 048
  2. FUROSEMIDE [Concomitant]
     Dosage: 40 MG, QD
  3. ASPIRIN [Concomitant]
     Dosage: UNK UKN, UNK
  4. VITAMIN TAB [Concomitant]
     Dosage: UNK UKN, UNK
  5. TRAMADOL HCL [Concomitant]
     Dosage: UNK UKN, UNK
  6. CALCIUM CARBONATE [Concomitant]
     Dosage: UNK UKN, UNK
  7. TEKTURNA HCT [Suspect]
     Indication: HYPERTENSION
     Dosage: 300/12.5 MG, QD
     Route: 048
     Dates: start: 20111101, end: 20111107
  8. TEKTURNA HCT [Suspect]
     Dosage: 150/12.5 MG, QD
     Route: 048
     Dates: start: 20111107
  9. MULTIVITAMIN [Concomitant]
     Dosage: UNK UKN, UNK
  10. LASIX [Concomitant]
     Indication: OEDEMA

REACTIONS (12)
  - SOMNOLENCE [None]
  - HEAD INJURY [None]
  - GAIT DISTURBANCE [None]
  - DIARRHOEA [None]
  - MALAISE [None]
  - DYSPNOEA [None]
  - VISION BLURRED [None]
  - SPEECH DISORDER [None]
  - DIZZINESS [None]
  - FATIGUE [None]
  - FEELING ABNORMAL [None]
  - LOSS OF CONSCIOUSNESS [None]
